FAERS Safety Report 5453624-7 (Version None)
Quarter: 2007Q3

REPORT INFORMATION
  Report Type: 
  Country: None (occurrence: None)
  Receive Date: 20070917
  Receipt Date: 20070905
  Transmission Date: 20080115
  Serious: Yes (Hospitalization, Other)
  Sender: FDA-Public Use
  Company Number: HQWYE069107SEP07

PATIENT
  Sex: Female
  Weight: 80.81 kg

DRUGS (4)
  1. TORISEL [Suspect]
     Indication: RENAL CELL CARCINOMA STAGE UNSPECIFIED
     Route: 042
     Dates: start: 20070820
  2. CALCIUM [Concomitant]
     Dosage: DOSE AND DATES OF THERAPY NOT PROVIDED
  3. ASCORBIC ACID/ERGOCALCIFEROL/FOLIC ACID/NICOTINAMIDE/PANTHENOL/RETINOL [Concomitant]
     Dosage: DOSE AND THERAPY DATES NOT PROVIDED
  4. WELLBUTRIN [Concomitant]
     Dosage: 300 MG (THERAPY DATES NOT PROVIDED)

REACTIONS (2)
  - DISEASE PROGRESSION [None]
  - PLEURAL EFFUSION [None]
